FAERS Safety Report 8287561-X (Version None)
Quarter: 2012Q2

REPORT INFORMATION
  Report Type: 
  Country: None (occurrence: None)
  Receive Date: 20120416
  Receipt Date: 20120404
  Transmission Date: 20120825
  Serious: Yes (Other)
  Sender: FDA-Public Use
  Company Number: PHEH2012US007336

PATIENT
  Age: 18 Year
  Sex: Female

DRUGS (1)
  1. VIVELLE-DOT [Suspect]
     Dosage: 0.025 MG, UNK
     Route: 062

REACTIONS (2)
  - TYPE 1 DIABETES MELLITUS [None]
  - ALOPECIA [None]
